FAERS Safety Report 10413289 (Version 2)
Quarter: 2014Q3

REPORT INFORMATION
  Report Type: Spontaneous
  Country: FR (occurrence: FR)
  Receive Date: 20140827
  Receipt Date: 20140918
  Transmission Date: 20150326
  Serious: Yes (Hospitalization)
  Sender: FDA-Public Use
  Company Number: FR-PFIZER INC-2014232406

PATIENT
  Age: 44 Year
  Sex: Female

DRUGS (19)
  1. TRANSIPEG [Concomitant]
     Active Substance: POLYETHYLENE GLYCOL 3350
     Dosage: UNK
  2. OFLOCET [Concomitant]
     Active Substance: OFLOXACIN
     Indication: DIABETIC FOOT
     Dosage: UNK
     Dates: start: 20140731
  3. LOXAPAC [Concomitant]
     Active Substance: LOXAPINE SUCCINATE
     Indication: SCHIZOPHRENIA
     Dosage: 50 GTT, DAILY
     Route: 048
     Dates: end: 20140809
  4. DEPAKOTE [Concomitant]
     Active Substance: DIVALPROEX SODIUM
     Indication: SCHIZOPHRENIA
     Dosage: 2 DF, 2X/DAY
     Route: 048
     Dates: end: 20140809
  5. PHENERGAN [Concomitant]
     Active Substance: PROMETHAZINE HYDROCHLORIDE
     Indication: SCHIZOPHRENIA
     Dosage: 25 MG, 1X/DAY
     Route: 048
  6. CLINDAMYCIN [Concomitant]
     Active Substance: CLINDAMYCIN\CLINDAMYCIN PHOSPHATE
     Indication: DIABETIC FOOT
     Dosage: UNK
     Dates: start: 20140731
  7. XANAX [Concomitant]
     Active Substance: ALPRAZOLAM
     Indication: SCHIZOPHRENIA
     Dosage: 0.50 MG, 4X/DAY
     Route: 048
  8. THERALENE [Concomitant]
     Active Substance: TRIMEPRAZINE
     Indication: SCHIZOPHRENIA
     Dosage: 50 GTT, 1X/DAY
     Route: 048
  9. TAZOCILLINE [Suspect]
     Active Substance: PIPERACILLIN SODIUM\TAZOBACTAM SODIUM
     Indication: DIABETIC FOOT
     Dosage: 4 G, 3X/DAY
     Route: 042
     Dates: start: 20140802, end: 20140807
  10. AZACTAM [Suspect]
     Active Substance: AZTREONAM
     Indication: DIABETIC FOOT
     Dosage: 1 DF, 3X/DAY
     Route: 042
     Dates: start: 20140807, end: 20140808
  11. LYRICA [Concomitant]
     Active Substance: PREGABALIN
     Indication: NEURALGIA
     Dosage: 150 MG, 3X/DAY
     Route: 048
  12. LANTUS [Concomitant]
     Active Substance: INSULIN GLARGINE
     Indication: TYPE 1 DIABETES MELLITUS
  13. GENTAMYCIN [Concomitant]
     Active Substance: GENTAMICIN
     Dosage: UNK
     Route: 042
     Dates: start: 20140802, end: 20140804
  14. EUPANTOL [Concomitant]
     Active Substance: PANTOPRAZOLE SODIUM
     Indication: SCHIZOPHRENIA
     Dosage: 40 MG, 1X/DAY
     Route: 048
  15. LEXOMIL [Concomitant]
     Active Substance: BROMAZEPAM
     Dosage: UNK
  16. ZYVOXID [Concomitant]
     Active Substance: LINEZOLID
     Indication: DIABETIC FOOT
     Dosage: 600 MG, 2X/DAY
     Route: 048
     Dates: start: 20140802, end: 20140808
  17. PERIDYS [Concomitant]
     Active Substance: DOMPERIDONE
     Dosage: 1 DF, 2X/DAY
     Route: 048
  18. ACTRAPID [Concomitant]
     Active Substance: INSULIN HUMAN
     Indication: TYPE 1 DIABETES MELLITUS
  19. TAHOR [Concomitant]
     Active Substance: ATORVASTATIN CALCIUM
     Dosage: UNK

REACTIONS (3)
  - Rash maculo-papular [Recovering/Resolving]
  - Face oedema [Recovered/Resolved]
  - Purpura [Recovering/Resolving]

NARRATIVE: CASE EVENT DATE: 20140807
